FAERS Safety Report 9751543 (Version 2)
Quarter: 2013Q4

REPORT INFORMATION
  Report Type: Spontaneous
  Country: US (occurrence: US)
  Receive Date: 20131212
  Receipt Date: 20131212
  Transmission Date: 20140711
  Serious: No
  Sender: FDA-Public Use
  Company Number: US-PURDUE-USA-2013-0100325

PATIENT
  Sex: Female

DRUGS (3)
  1. DILAUDID TABLET [Suspect]
     Indication: COMPLEX REGIONAL PAIN SYNDROME
     Dosage: 8 MG, UNK
     Route: 048
     Dates: end: 20110729
  2. DILAUDID TABLET [Suspect]
     Indication: PAIN
  3. METFORMIN [Concomitant]
     Indication: DIABETES MELLITUS

REACTIONS (3)
  - Bedridden [Unknown]
  - Drug ineffective [Unknown]
  - Drug tolerance [Unknown]
